FAERS Safety Report 26052344 (Version 1)
Quarter: 2025Q4

REPORT INFORMATION
  Report Type: Spontaneous
  Country: US (occurrence: US)
  Receive Date: 20251117
  Receipt Date: 20251117
  Transmission Date: 20260118
  Serious: No
  Sender: ELI LILLY AND COMPANY
  Company Number: US-ELI_LILLY_AND_COMPANY-US202511010824

PATIENT
  Age: 72 Year
  Sex: Male

DRUGS (5)
  1. MOUNJARO [Suspect]
     Active Substance: TIRZEPATIDE
     Indication: Erectile dysfunction
     Dosage: 5 MG, UNKNOWN
     Route: 065
     Dates: start: 20250909
  2. MOUNJARO [Suspect]
     Active Substance: TIRZEPATIDE
     Indication: Erectile dysfunction
     Dosage: 5 MG, UNKNOWN
     Route: 065
     Dates: start: 20250909
  3. MOUNJARO [Suspect]
     Active Substance: TIRZEPATIDE
     Indication: Erectile dysfunction
     Dosage: 5 MG, UNKNOWN
     Route: 065
     Dates: start: 20250909
  4. MOUNJARO [Suspect]
     Active Substance: TIRZEPATIDE
     Indication: Erectile dysfunction
     Dosage: 5 MG, UNKNOWN
     Route: 065
     Dates: start: 20250909
  5. CIALIS [Suspect]
     Active Substance: TADALAFIL
     Indication: Product used for unknown indication
     Dosage: 20 MG, UNKNOWN
     Route: 065

REACTIONS (4)
  - Drug ineffective [Not Recovered/Not Resolved]
  - Off label use [Unknown]
  - Erectile dysfunction [Unknown]
  - Weight decreased [Unknown]

NARRATIVE: CASE EVENT DATE: 20250909
